FAERS Safety Report 9814685 (Version 2)
Quarter: 2014Q1

REPORT INFORMATION
  Report Type: Spontaneous
  Country: US (occurrence: US)
  Receive Date: 20140113
  Receipt Date: 20140113
  Transmission Date: 20141002
  Serious: Yes (Hospitalization)
  Sender: FDA-Public Use
  Company Number: US-SANOFI-AVENTIS-2012SA087223

PATIENT
  Age: 52 Year
  Sex: Female
  Weight: 67 kg

DRUGS (12)
  1. DOCETAXEL [Suspect]
     Indication: HER-2 POSITIVE BREAST CANCER
     Dosage: FORM: VIAL?DOSE LEVEL: 60MG/M2
     Route: 042
     Dates: start: 20100212
  2. DOCETAXEL [Suspect]
     Indication: HER-2 POSITIVE BREAST CANCER
     Dosage: DOSE LEVEL: 50 MG/M2
     Route: 042
     Dates: start: 20100416
  3. BEVACIZUMAB [Suspect]
     Indication: HER-2 POSITIVE BREAST CANCER
     Dosage: FORM: VIAL?DOSE LEVEL: 15 MG/KG
     Route: 042
     Dates: start: 20100212
  4. CARBOPLATIN [Suspect]
     Indication: HER-2 POSITIVE BREAST CANCER
     Dosage: FORM: VIAL?DOSE LEVEL: 5 AUC
     Route: 042
     Dates: start: 20100212
  5. CARBOPLATIN [Suspect]
     Indication: HER-2 POSITIVE BREAST CANCER
     Dosage: DOSE LEVEL: 4 AUC
     Route: 042
     Dates: start: 20100416
  6. TRASTUZUMAB [Concomitant]
     Indication: HER-2 POSITIVE BREAST CANCER
     Dosage: FORM: VIAL?DOSE LEVEL: 6 MG/KG
     Route: 042
     Dates: start: 20100212
  7. COMPAZINE [Concomitant]
     Dates: start: 20100212
  8. ZOFRAN [Concomitant]
     Dates: start: 20100212
  9. DARVON [Concomitant]
     Dates: start: 20100212
  10. PROMETHAZINE [Concomitant]
     Dates: start: 20100306
  11. PROTONIX [Concomitant]
     Dates: start: 20100306
  12. VALACICLOVIR [Concomitant]
     Dates: start: 20100306

REACTIONS (1)
  - Febrile neutropenia [Recovered/Resolved]
